FAERS Safety Report 25741611 (Version 1)
Quarter: 2025Q3

REPORT INFORMATION
  Report Type: Spontaneous
  Country: TW (occurrence: TW)
  Receive Date: 20250829
  Receipt Date: 20250829
  Transmission Date: 20251021
  Serious: Yes (Death, Hospitalization, Other)
  Sender: BOEHRINGER INGELHEIM
  Company Number: TW-BoehringerIngelheim-2025-BI-091346

PATIENT
  Age: 72 Year
  Sex: Male
  Weight: 76.5 kg

DRUGS (4)
  1. LINAGLIPTIN [Suspect]
     Active Substance: LINAGLIPTIN
     Indication: Type 2 diabetes mellitus
     Dates: start: 20230124, end: 20230131
  2. LINAGLIPTIN [Suspect]
     Active Substance: LINAGLIPTIN
     Dates: start: 20250312, end: 20250320
  3. LINAGLIPTIN [Suspect]
     Active Substance: LINAGLIPTIN
     Dates: start: 20250624, end: 20250627
  4. LINAGLIPTIN\METFORMIN HYDROCHLORIDE [Suspect]
     Active Substance: LINAGLIPTIN\METFORMIN HYDROCHLORIDE
     Indication: Type 2 diabetes mellitus
     Dosage: 850.0 MG/2.5MG
     Dates: start: 20230211, end: 20230702

REACTIONS (10)
  - Somnolence [Fatal]
  - Dyspnoea [Fatal]
  - Pneumonia fungal [Fatal]
  - Tuberculosis [Fatal]
  - Pemphigoid [Recovering/Resolving]
  - Ischaemic stroke [Recovering/Resolving]
  - Skin infection [Unknown]
  - Soft tissue infection [Unknown]
  - Toxic shock syndrome [Unknown]
  - Adrenocortical insufficiency acute [Unknown]

NARRATIVE: CASE EVENT DATE: 20250225
